FAERS Safety Report 8516431-4 (Version None)
Quarter: 2012Q3

REPORT INFORMATION
  Report Type: 
  Country: None (occurrence: None)
  Receive Date: 20120718
  Receipt Date: 20120628
  Transmission Date: 20120928
  Serious: Yes (Death)
  Sender: FDA-Public Use
  Company Number: CO-009507513-1207COL000606

PATIENT

DRUGS (2)
  1. PEG-INTRON [Suspect]
     Dosage: 80 MICROGRAM, QD
     Dates: start: 20120622, end: 20120624
  2. PEG-INTRON [Suspect]
     Indication: HEPATITIS B
     Dosage: 80 MICROGRAM, QD
     Dates: start: 20120615

REACTIONS (2)
  - ATELECTASIS [None]
  - RESPIRATORY FAILURE [None]
